FAERS Safety Report 8570574-8 (Version None)
Quarter: 2012Q3

REPORT INFORMATION
  Report Type: 
  Country: None (occurrence: None)
  Receive Date: 20120804
  Receipt Date: 20120703
  Transmission Date: 20120928
  Serious: No
  Sender: FDA-Public Use
  Company Number: US-009507513-1207USA003160

PATIENT

DRUGS (4)
  1. TYLENOL (CAPLET) [Concomitant]
     Dosage: 650 MG, UNK
     Route: 048
  2. PEGASYS [Suspect]
     Dosage: 180 MICROGRAM/M
     Route: 058
  3. REBETOL [Suspect]
     Dosage: 200 UNK, UNK
     Route: 048
  4. VICTRELIS [Suspect]
     Dosage: 800 MG, TID
     Route: 048

REACTIONS (3)
  - FATIGUE [None]
  - INFLUENZA LIKE ILLNESS [None]
  - DYSPNOEA [None]
